APPROVED DRUG PRODUCT: DOXAPRAM HYDROCHLORIDE
Active Ingredient: DOXAPRAM HYDROCHLORIDE
Strength: 20MG/ML
Dosage Form/Route: INJECTABLE;INJECTION
Application: A073529 | Product #001
Applicant: WATSON LABORATORIES INC
Approved: Jan 30, 1992 | RLD: No | RS: No | Type: DISCN